FAERS Safety Report 6447372-4 (Version None)
Quarter: 2009Q4

REPORT INFORMATION
  Report Type: 
  Country: None (occurrence: None)
  Receive Date: 20091119
  Receipt Date: 20091106
  Transmission Date: 20100525
  Serious: Yes (Death)
  Sender: FDA-Public Use
  Company Number: US-ELI_LILLY_AND_COMPANY-US200910005899

PATIENT
  Sex: Male

DRUGS (3)
  1. ZYPREXA [Suspect]
     Indication: DEPRESSION
     Dosage: 5 MG, DAILY (1/D)
     Dates: start: 20091015
  2. DESVENLAFAXINE [Concomitant]
     Indication: DEPRESSION
     Dosage: 1 D/F, UNK
     Dates: start: 20090924
  3. DESVENLAFAXINE [Concomitant]
     Dosage: 100 MG, UNK
     Dates: start: 20091012

REACTIONS (2)
  - COMPLETED SUICIDE [None]
  - OFF LABEL USE [None]
